FAERS Safety Report 17037595 (Version 1)
Quarter: 2019Q4

REPORT INFORMATION
  Report Type: Spontaneous
  Country: JP (occurrence: JP)
  Receive Date: 20191115
  Receipt Date: 20191115
  Transmission Date: 20200122
  Serious: Yes (Death, Other)
  Sender: FDA-Public Use
  Company Number: NVSC2019JP035601

PATIENT
  Age: 75 Year
  Sex: Female
  Weight: 47.9 kg

DRUGS (4)
  1. METHOTREXATE. [Suspect]
     Active Substance: METHOTREXATE
     Dosage: 6 MG, QW FOR SIX MONTHS
     Route: 065
  2. METHOTREXATE. [Suspect]
     Active Substance: METHOTREXATE
     Dosage: 8 MG, QW FOR FOUR YEARS
     Route: 065
  3. TACROLIMUS. [Suspect]
     Active Substance: TACROLIMUS
     Indication: RHEUMATOID ARTHRITIS
     Dosage: UNK
     Route: 065
  4. METHOTREXATE. [Suspect]
     Active Substance: METHOTREXATE
     Indication: RHEUMATOID ARTHRITIS
     Dosage: 4 MG, QW FOR SIX MONTHS
     Route: 065

REACTIONS (6)
  - Product use in unapproved indication [Unknown]
  - Angiocentric lymphoma [Fatal]
  - Plasma cell myeloma [Unknown]
  - Seizure [Fatal]
  - Epstein-Barr virus infection [Unknown]
  - Dyspnoea [Fatal]
